FAERS Safety Report 16204003 (Version 1)
Quarter: 2019Q2

REPORT INFORMATION
  Report Type: Spontaneous
  Country: US (occurrence: US)
  Receive Date: 20190416
  Receipt Date: 20190416
  Transmission Date: 20190711
  Serious: Yes (Hospitalization, Other)
  Sender: FDA-Public Use
  Company Number: US-MYLANLABS-2019M1036084

PATIENT
  Age: 66 Year
  Sex: Male

DRUGS (11)
  1. CHLORAMBUCIL [Suspect]
     Active Substance: CHLORAMBUCIL
     Indication: CHRONIC LYMPHOCYTIC LEUKAEMIA
     Route: 065
     Dates: start: 2005
  2. BENDAMUSTINE [Suspect]
     Active Substance: BENDAMUSTINE
     Dosage: UNK
     Route: 065
     Dates: start: 201408
  3. IMMUNOGLOBULIN                     /07494701/ [Concomitant]
     Active Substance: IMMUNE GLOBULIN NOS
     Indication: HYPOGAMMAGLOBULINAEMIA
     Dosage: UNK
     Route: 041
  4. PENTOSTATIN. [Suspect]
     Active Substance: PENTOSTATIN
     Indication: CHRONIC LYMPHOCYTIC LEUKAEMIA RECURRENT
     Dosage: AS A PART OF PCR CHEMOTHERAPY
     Route: 065
  5. CYCLOPHOSPHAMIDE. [Suspect]
     Active Substance: CYCLOPHOSPHAMIDE
     Indication: CHRONIC LYMPHOCYTIC LEUKAEMIA RECURRENT
     Dosage: AS A PART OF PCR CHEMOTHERAPY
     Route: 065
  6. BENDAMUSTINE [Suspect]
     Active Substance: BENDAMUSTINE
     Indication: CHRONIC LYMPHOCYTIC LEUKAEMIA RECURRENT
     Dosage: SIX CYCLES
     Route: 065
     Dates: start: 2008, end: 2009
  7. IBRUTINIB [Suspect]
     Active Substance: IBRUTINIB
     Indication: CHRONIC LYMPHOCYTIC LEUKAEMIA RECURRENT
     Dosage: 420 MILLIGRAM, QD
     Route: 065
  8. RITUXIMAB. [Suspect]
     Active Substance: RITUXIMAB
     Indication: CHRONIC LYMPHOCYTIC LEUKAEMIA RECURRENT
     Dosage: SIX CYCLES
     Route: 065
     Dates: start: 2008, end: 2009
  9. RITUXIMAB. [Suspect]
     Active Substance: RITUXIMAB
     Dosage: AS A PART OF PCR CHEMOTHERAPY
     Route: 065
  10. PREDNISONE. [Suspect]
     Active Substance: PREDNISONE
     Indication: CHRONIC LYMPHOCYTIC LEUKAEMIA
     Route: 065
     Dates: start: 2005
  11. RITUXIMAB. [Suspect]
     Active Substance: RITUXIMAB
     Dosage: UNK
     Route: 065
     Dates: start: 201408

REACTIONS (5)
  - Pancreatitis [Recovering/Resolving]
  - Sinusitis [Recovering/Resolving]
  - Cryptococcosis [Recovering/Resolving]
  - Bronchitis [Recovering/Resolving]
  - Encephalitis [Recovering/Resolving]
